FAERS Safety Report 21484000 (Version 3)
Quarter: 2023Q1

REPORT INFORMATION
  Report Type: Other
  Country: US (occurrence: None)
  Receive Date: 20221020
  Receipt Date: 20230216
  Transmission Date: 20230418
  Serious: Yes (Life-Threatening, Hospitalization)
  Sender: FDA-Public Use
  Company Number: US-MLMSERVICE-20221012-3855402-1

PATIENT
  Age: 55 Year
  Sex: Female
  Weight: 52.9 kg

DRUGS (8)
  1. MYCOPHENOLATE MOFETIL [Suspect]
     Active Substance: MYCOPHENOLATE MOFETIL
     Indication: Immunosuppressant drug therapy
     Route: 065
  2. PREDNISONE [Suspect]
     Active Substance: PREDNISONE
     Indication: Immunosuppressant drug therapy
     Route: 065
  3. TACROLIMUS [Suspect]
     Active Substance: TACROLIMUS
     Indication: Immunosuppressant drug therapy
     Route: 065
  4. AMPHOTERICIN B [Concomitant]
     Active Substance: AMPHOTERICIN B
  5. FLUCYTOSINE [Concomitant]
     Active Substance: FLUCYTOSINE
  6. CEFTRIAXONE [Concomitant]
     Active Substance: CEFTRIAXONE
  7. AMPICILLIN [Concomitant]
     Active Substance: AMPICILLIN
  8. FLUCONAZOLE [Concomitant]
     Active Substance: FLUCONAZOLE
     Dosage: 200 MG DAILY LASTING FOR 1 YEAR
     Route: 048

REACTIONS (2)
  - Meningitis bacterial [Recovered/Resolved]
  - Cryptococcosis [Recovered/Resolved]
